FAERS Safety Report 5268684-6 (Version None)
Quarter: 2007Q1

REPORT INFORMATION
  Report Type: 
  Country: None (occurrence: None)
  Receive Date: 20070314
  Receipt Date: 20070310
  Transmission Date: 20070707
  Serious: Yes (Other)
  Sender: FDA-Public Use
  Company Number: 234799

PATIENT
  Age: 84 Year
  Sex: Male

DRUGS (1)
  1. LUCENTIS [Suspect]
     Indication: MACULAR DEGENERATION
     Dosage: 0.5 MG/0.05 ML, 1/MONTH; INTRAVENOUS
     Route: 042
     Dates: start: 20060701

REACTIONS (1)
  - RETINAL VEIN OCCLUSION [None]
